FAERS Safety Report 6371392-1 (Version None)
Quarter: 2009Q3

REPORT INFORMATION
  Report Type: 
  Country: None (occurrence: None)
  Receive Date: 20090918
  Receipt Date: 20090903
  Transmission Date: 20100115
  Serious: Yes (Hospitalization)
  Sender: FDA-Public Use
  Company Number: 2009002692

PATIENT
  Age: 59 Year
  Sex: Male

DRUGS (2)
  1. TARCEVA [Suspect]
     Indication: LUNG CANCER METASTATIC
     Dosage: (150 MG,QD), ORAL
     Route: 048
     Dates: start: 20090729, end: 20090823
  2. BI-TILDIEM (DILTIAZEM HYDROCHLORIDE) [Concomitant]

REACTIONS (3)
  - DERMATITIS ACNEIFORM [None]
  - HEPATITIS [None]
  - PULMONARY EMBOLISM [None]
